FAERS Safety Report 4650903-8 (Version None)
Quarter: 2005Q2

REPORT INFORMATION
  Report Type: 
  Country: None (occurrence: None)
  Receive Date: 20050429
  Receipt Date: 20050414
  Transmission Date: 20051028
  Serious: Yes (Other)
  Sender: FDA-Public Use
  Company Number: S05-USA-01761-01

PATIENT
  Age: 54 Year
  Sex: Female

DRUGS (3)
  1. LEXAPRO [Suspect]
     Indication: GENERALISED ANXIETY DISORDER
     Dosage: 10 MG QD PO
     Route: 048
     Dates: start: 20050105
  2. CALCIUM GLUCONATE [Concomitant]
  3. VITAMIN C [Concomitant]

REACTIONS (2)
  - DEAFNESS UNILATERAL [None]
  - VIRAL INFECTION [None]
